FAERS Safety Report 25190145 (Version 1)
Quarter: 2025Q2

REPORT INFORMATION
  Report Type: Spontaneous
  Country: FR (occurrence: FR)
  Receive Date: 20250411
  Receipt Date: 20250411
  Transmission Date: 20250716
  Serious: Yes (Congenital Anomaly, Other)
  Sender: FRESENIUS KABI
  Company Number: None

PATIENT
  Sex: Female
  Weight: 2.475 kg

DRUGS (2)
  1. ONDANSETRON [Suspect]
     Active Substance: ONDANSETRON
     Indication: Morning sickness
     Route: 064
     Dates: end: 20230325
  2. FOLIC ACID [Suspect]
     Active Substance: FOLIC ACID
     Indication: Pregnancy
     Route: 064

REACTIONS (3)
  - Foetal growth restriction [Not Recovered/Not Resolved]
  - Cleft palate [Not Recovered/Not Resolved]
  - Retrognathia [Not Recovered/Not Resolved]

NARRATIVE: CASE EVENT DATE: 20230101
